FAERS Safety Report 20383050 (Version 2)
Quarter: 2022Q1

REPORT INFORMATION
  Report Type: Report from Study
  Country: US (occurrence: US)
  Receive Date: 20220127
  Receipt Date: 20220311
  Transmission Date: 20220423
  Serious: Yes (Other)
  Sender: FDA-Public Use
  Company Number: US-NOVARTISPH-NVSC2022US014182

PATIENT
  Age: 52 Year
  Sex: Male

DRUGS (1)
  1. ENTRESTO [Suspect]
     Active Substance: SACUBITRIL\VALSARTAN
     Indication: Cardiac failure
     Dosage: 1 DOSAGE FORM, BID,(49/51 MG)
     Route: 048
     Dates: start: 20211115

REACTIONS (7)
  - Pneumonia [Unknown]
  - Pulmonary oedema [Unknown]
  - Confusional state [Unknown]
  - Feeling abnormal [Unknown]
  - Memory impairment [Unknown]
  - Angiopathy [Unknown]
  - Fatigue [Unknown]

NARRATIVE: CASE EVENT DATE: 20220112
